FAERS Safety Report 8504895-1 (Version None)
Quarter: 2012Q3

REPORT INFORMATION
  Report Type: 
  Country: None (occurrence: None)
  Receive Date: 20120712
  Receipt Date: 20120707
  Transmission Date: 20120928
  Serious: Yes (Other)
  Sender: FDA-Public Use
  Company Number: PHHY2012MX059324

PATIENT
  Sex: Female

DRUGS (3)
  1. TEGRETOL [Concomitant]
     Dosage: 2 TABLETS DAILY
  2. EXFORGE [Suspect]
     Indication: HYPERTENSION
     Dosage: 1 TABLET (160/5 MG) DAILY
     Dates: start: 20111027
  3. DAFLON (DIOSMIN/HESPERIDIN) [Concomitant]
     Indication: CARDIOVASCULAR DISORDER
     Dosage: 3 TABLETS DAILY

REACTIONS (1)
  - VASCULAR RUPTURE [None]
